FAERS Safety Report 9547491 (Version 1)
Quarter: 2013Q2

REPORT INFORMATION
  Report Type: Spontaneous
  Country: US (occurrence: None)
  Receive Date: 20130606
  Receipt Date: 20130606
  Transmission Date: 20140414
  Serious: Yes (Other)
  Sender: FDA-Public Use
  Company Number: 163-POMAL-13041469

PATIENT
  Age: 62 Year
  Sex: Female

DRUGS (26)
  1. POMALYST [Suspect]
     Indication: PLASMA CELL MYELOMA
     Dosage: 4 MG, 21 IN 28 D, PO
     Route: 048
     Dates: start: 201303
  2. DEXAMETHASONE [Suspect]
     Indication: SLEEP DISORDER
     Dates: start: 2013
  3. FRAGMIN [Suspect]
     Indication: PRODUCT USED FOR UNKNOWN INDICATION
  4. AREDIA (PAMIDRONATE DISODIUM) [Concomitant]
  5. BACLOFEN (BACLOFEN) [Concomitant]
  6. CALCIUIM (CALCIUIM) [Concomitant]
  7. VITAMIN D3 (COLECALCIFEROL) [Concomitant]
  8. PORCINE (INSULIN PORCINE) [Concomitant]
  9. COLACE [Concomitant]
  10. FAMCICLOVIR (FAMCICLOVIR) [Concomitant]
  11. FLUCONAZOLE (FLUCONAZOLE) [Concomitant]
  12. GRANISETRON (GRANISETRON) [Concomitant]
  13. HERBAL DRUGS (ALL OTHER THERAPEUTIC PRODUCTS) [Concomitant]
  14. LEVOTHYROXINE (LEVOTHYROXINE) [Concomitant]
  15. LOPERAMIDE (LOPERAMIDE) [Concomitant]
  16. MILK OF MAGNESIA [Concomitant]
  17. OMEPRAZOLE (OMEPRAZOLE) [Concomitant]
  18. PERCOCET (OXYCOCET) [Concomitant]
  19. RANTIDINE (RANITIDINE) [Concomitant]
  20. SENNOSIDES-DOCUSATE SODIOUM (COLOXYL WITH SENNA) [Concomitant]
  21. CARAFATE (SUCRALFATE) [Concomitant]
  22. TURMERIC (TURMERIC) [Concomitant]
  23. VITAMIN B12 (PYRIDOXINE HYDROCHLORIDE) [Concomitant]
  24. VITAIN B6 (PYRIDOXINE HYDROCHLORIDE) [Concomitant]
  25. LACTULOSE (LACTULOSE) [Concomitant]
  26. OXYCODONE (OXYCODONE) [Concomitant]

REACTIONS (6)
  - Platelet count decreased [None]
  - Drug dose omission [None]
  - Heart rate increased [None]
  - Neck pain [None]
  - Asthenia [None]
  - Insomnia [None]
